FAERS Safety Report 6983715-0 (Version None)
Quarter: 2010Q3

REPORT INFORMATION
  Report Type: 
  Country: None (occurrence: None)
  Receive Date: 20100914
  Receipt Date: 20051125
  Transmission Date: 20110219
  Serious: Yes (Hospitalization)
  Sender: FDA-Public Use
  Company Number: US-WYE-H07148108

PATIENT
  Sex: Female

DRUGS (4)
  1. IBUPROFEN [Suspect]
     Route: 048
  2. ATENOLOL [Concomitant]
     Dosage: UNKNOWN
     Route: 048
  3. ZOCOR [Concomitant]
     Dosage: UNKNOWN
     Route: 048
  4. LISINOPRIL [Suspect]
     Route: 048

REACTIONS (2)
  - OVERDOSE [None]
  - RENAL FAILURE ACUTE [None]
